FAERS Safety Report 15735041 (Version 1)
Quarter: 2018Q4

REPORT INFORMATION
  Report Type: Spontaneous
  Country: DE (occurrence: DE)
  Receive Date: 20181218
  Receipt Date: 20181218
  Transmission Date: 20190205
  Serious: Yes (Other)
  Sender: FDA-Public Use
  Company Number: DE-MYLANLABS-2018M1093820

PATIENT
  Age: 65 Year
  Sex: Female
  Weight: 67 kg

DRUGS (6)
  1. PRAVASTATIN. [Suspect]
     Active Substance: PRAVASTATIN
     Indication: CORONARY ARTERY DISEASE
     Dosage: 10 MILLIGRAM, 25 DAYS
     Dates: start: 20180513, end: 20180606
  2. SIMVASTATIN. [Suspect]
     Active Substance: SIMVASTATIN
     Indication: CORONARY ARTERY DISEASE
     Dosage: 20 MILLIGRAM, 11 DAYS
     Dates: start: 20180503, end: 20180513
  3. IVABRADINE [Concomitant]
     Active Substance: IVABRADINE
     Indication: TACHYCARDIA
     Dosage: DAILY DOSE: 5 MG MILLGRAM(S) EVERY DAYS
     Dates: start: 2018, end: 20180603
  4. IVABRADINE [Concomitant]
     Active Substance: IVABRADINE
     Dosage: DAILY DOSE: 10 MG MILLGRAM(S) EVERY DAYS
     Dates: start: 20180604
  5. ASPIRIN. [Concomitant]
     Active Substance: ASPIRIN
     Indication: TACHYCARDIA
     Dosage: DAILY DOSE: 1 DF DOSAGE FORM EVERY DAYS
     Dates: start: 20171119
  6. SIMVASTATIN. [Suspect]
     Active Substance: SIMVASTATIN
     Dosage: 40 MILLIGRAM, QID
     Dates: start: 20180607, end: 20180610

REACTIONS (4)
  - Orthopnoea [Not Recovered/Not Resolved]
  - Cough [Not Recovered/Not Resolved]
  - Heart rate increased [Not Recovered/Not Resolved]
  - Dyspnoea exertional [Not Recovered/Not Resolved]

NARRATIVE: CASE EVENT DATE: 2018
